FAERS Safety Report 24941494 (Version 1)
Quarter: 2025Q1

REPORT INFORMATION
  Report Type: Spontaneous
  Country: US (occurrence: US)
  Receive Date: 20250207
  Receipt Date: 20250207
  Transmission Date: 20250409
  Serious: Yes (Death)
  Sender: AMGEN
  Company Number: US-AMGEN-USASP2025023087

PATIENT
  Age: 13 Year
  Sex: Male

DRUGS (4)
  1. PREDNISONE [Suspect]
     Active Substance: PREDNISONE
     Indication: Precursor T-lymphoblastic lymphoma/leukaemia recurrent
     Route: 065
  2. BORTEZOMIB [Concomitant]
     Active Substance: BORTEZOMIB
     Indication: Precursor T-lymphoblastic lymphoma/leukaemia recurrent
     Route: 065
  3. DOXORUBICIN [Concomitant]
     Active Substance: DOXORUBICIN
     Indication: Precursor T-lymphoblastic lymphoma/leukaemia recurrent
     Route: 065
  4. ASPARAGINASE [Concomitant]
     Active Substance: ASPARAGINASE
     Indication: Precursor T-lymphoblastic lymphoma/leukaemia recurrent

REACTIONS (1)
  - Sepsis [Fatal]
